FAERS Safety Report 7057085-6 (Version None)
Quarter: 2010Q4

REPORT INFORMATION
  Report Type: 
  Country: None (occurrence: None)
  Receive Date: 20101022
  Receipt Date: 20101014
  Transmission Date: 20110411
  Serious: Yes (Hospitalization)
  Sender: FDA-Public Use
  Company Number: FR-BAYER-201042586GPV

PATIENT
  Age: 35 Year
  Sex: Female

DRUGS (1)
  1. MOXIFLOXACIN HCL [Suspect]
     Indication: TONSILLITIS
     Route: 048
     Dates: start: 20100101, end: 20100101

REACTIONS (4)
  - DYSPNOEA [None]
  - MUSCULAR WEAKNESS [None]
  - MUSCULOSKELETAL STIFFNESS [None]
  - OEDEMA PERIPHERAL [None]
